FAERS Safety Report 9188899 (Version 2)
Quarter: 2013Q1

REPORT INFORMATION
  Report Type: Spontaneous
  Country: GB (occurrence: GB)
  Receive Date: 20130326
  Receipt Date: 20130327
  Transmission Date: 20140127
  Serious: Yes (Other)
  Sender: FDA-Public Use
  Company Number: GB-ABBOTT-13P-167-1065788-00

PATIENT
  Sex: Male

DRUGS (8)
  1. KALETRA [Suspect]
     Indication: PRODUCT USED FOR UNKNOWN INDICATION
     Dates: start: 2007
  2. NORVIR [Suspect]
     Indication: HEPATITIS C
     Route: 065
     Dates: start: 201204
  3. TELAPREVIR [Suspect]
     Indication: HEPATITIS C
     Dates: start: 201204
  4. TRUVADA [Suspect]
     Indication: HEPATITIS C
     Route: 065
     Dates: start: 201204
  5. RALTEGRAVIR [Suspect]
     Indication: HEPATITIS C
     Route: 065
     Dates: start: 201204
  6. ATAZANAVIR [Suspect]
     Indication: HEPATITIS C
     Route: 065
     Dates: start: 201204
  7. INTERFERON ALFA [Concomitant]
     Indication: HEPATITIS C
     Route: 065
     Dates: start: 2008
  8. RIBAVIRIN [Concomitant]
     Indication: HEPATITIS C
     Route: 065
     Dates: start: 2008

REACTIONS (9)
  - Haemophilic arthropathy [Unknown]
  - Erectile dysfunction [Unknown]
  - Depressed mood [Unknown]
  - Fatigue [Unknown]
  - Off label use [Unknown]
  - Treatment failure [Unknown]
  - Injury [Unknown]
  - Arthritis [Unknown]
  - Haemorrhage [Unknown]
